FAERS Safety Report 18253642 (Version 1)
Quarter: 2020Q3

REPORT INFORMATION
  Report Type: Spontaneous
  Country: SE (occurrence: SE)
  Receive Date: 20200910
  Receipt Date: 20200910
  Transmission Date: 20201103
  Serious: Yes (Death)
  Sender: FDA-Public Use
  Company Number: SE-009507513-2009SWE001629

PATIENT
  Age: 76 Year
  Sex: Male

DRUGS (10)
  1. DESLORATADINE. [Concomitant]
     Active Substance: DESLORATADINE
     Dosage: WHEN NECESSARY, THE DOSE CAN BE DOUBLED
     Dates: start: 20190808
  2. ESOMEPRAZOLE. [Concomitant]
     Active Substance: ESOMEPRAZOLE MAGNESIUM
     Dosage: 80MG, QD
     Dates: start: 20180105
  3. SPIRIVA RESPIMAT [Concomitant]
     Active Substance: TIOTROPIUM BROMIDE
     Dosage: 2 DOSAGE FORM, QD, INHALATION SOLUTION
     Route: 055
     Dates: start: 20171208
  4. DUROFERON [Concomitant]
     Active Substance: FERROUS SULFATE
     Dosage: 1 DOSAGE FORM, QD
     Dates: start: 20200527
  5. BEHEPAN [Concomitant]
     Dosage: 1MG, QD
     Dates: start: 20190822
  6. KEYTRUDA [Suspect]
     Active Substance: PEMBROLIZUMAB
     Indication: LUNG CANCER METASTATIC
  7. XARELTO [Concomitant]
     Active Substance: RIVAROXABAN
     Dosage: 15MG, QD
     Dates: start: 20191025
  8. BISOPROLOL [Concomitant]
     Active Substance: BISOPROLOL
     Dosage: 10MG, QD
     Dates: start: 20171208
  9. ALVEDON [Concomitant]
     Active Substance: ACETAMINOPHEN
     Dosage: 1?2 TABLETS WHEN NECESSARY, MAXIMUM 6 TABLETS PER DAY
     Dates: start: 20180807
  10. ACO MINIDERM [Concomitant]
     Dosage: 1 DOSAGE FORM, QD
     Dates: start: 20180322

REACTIONS (1)
  - Pneumonia [Fatal]

NARRATIVE: CASE EVENT DATE: 20200717
